FAERS Safety Report 5373353-8 (Version None)
Quarter: 2007Q2

REPORT INFORMATION
  Report Type: 
  Country: None (occurrence: None)
  Receive Date: 20070628
  Receipt Date: 20070618
  Transmission Date: 20071010
  Serious: Yes (Other)
  Sender: FDA-Public Use
  Company Number: IT-JNJFOC-20070604651

PATIENT
  Sex: Male

DRUGS (1)
  1. HALOPERIDOL INTENSOL [Suspect]
     Indication: PSYCHOTIC DISORDER
     Route: 048

REACTIONS (3)
  - DYSARTHRIA [None]
  - MUSCLE SPASMS [None]
  - MYALGIA [None]
